FAERS Safety Report 13100163 (Version 1)
Quarter: 2017Q1

REPORT INFORMATION
  Report Type: Spontaneous
  Country: US (occurrence: US)
  Receive Date: 20170110
  Receipt Date: 20170110
  Transmission Date: 20170428
  Serious: No
  Sender: FDA-Public Use
  Company Number: US-BIOGEN-2017BI00338899

PATIENT
  Sex: Male

DRUGS (1)
  1. TECFIDERA [Suspect]
     Active Substance: DIMETHYL FUMARATE
     Indication: MULTIPLE SCLEROSIS
     Route: 065
     Dates: start: 20141014, end: 20150821

REACTIONS (4)
  - Memory impairment [Not Recovered/Not Resolved]
  - Herpes zoster [Recovered/Resolved]
  - General physical health deterioration [Recovered/Resolved]
  - General symptom [Recovered/Resolved]
